FAERS Safety Report 8861476 (Version 1)
Quarter: 2012Q4

REPORT INFORMATION
  Report Type: 
  Country: US (occurrence: US)
  Receive Date: 20121025
  Receipt Date: 20121025
  Transmission Date: 20130627
  Serious: No
  Sender: FDA-Public Use
  Company Number: US-AMGEN-USASP2012014123

PATIENT
  Sex: Female

DRUGS (3)
  1. ENBREL [Suspect]
     Indication: SKIN DISORDER
     Dosage: 50 mg, qwk
     Route: 058
  2. ALBUTEROL                          /00139501/ [Concomitant]
     Dosage: 90 mug, UNK
  3. CLARITIN                           /00413701/ [Concomitant]
     Dosage: 5 mg, UNK

REACTIONS (1)
  - Therapeutic response decreased [Not Recovered/Not Resolved]
